FAERS Safety Report 9152088 (Version 1)
Quarter: 2013Q1

REPORT INFORMATION
  Report Type: Spontaneous
  Country: US (occurrence: None)
  Receive Date: 20130207
  Receipt Date: 20130207
  Transmission Date: 20140127
  Serious: Yes (Hospitalization)
  Sender: FDA-Public Use
  Company Number: 2013US001054

PATIENT
  Sex: Female

DRUGS (1)
  1. ICLUSIG [Suspect]
     Indication: CHRONIC MYELOID LEUKAEMIA
     Route: 048
     Dates: start: 20130116

REACTIONS (4)
  - Gallbladder disorder [None]
  - Gallbladder oedema [None]
  - Biliary dyskinesia [None]
  - Abdominal pain [None]
